FAERS Safety Report 7318048-6 (Version None)
Quarter: 2011Q1

REPORT INFORMATION
  Report Type: 
  Country: None (occurrence: None)
  Receive Date: 20110228
  Receipt Date: 20110218
  Transmission Date: 20110831
  Serious: Yes (Hospitalization)
  Sender: FDA-Public Use
  Company Number: US-BIOGENIDEC-2010BI032168

PATIENT
  Age: 56 Year
  Sex: Male
  Weight: 56 kg

DRUGS (1)
  1. TYSABRI [Suspect]
     Indication: MULTIPLE SCLEROSIS
     Route: 042

REACTIONS (4)
  - COMPLEX REGIONAL PAIN SYNDROME [None]
  - CELLULITIS STAPHYLOCOCCAL [None]
  - GAIT DISTURBANCE [None]
  - VENOUS INSUFFICIENCY [None]
